FAERS Safety Report 9274624 (Version 1)
Quarter: 2013Q2

REPORT INFORMATION
  Report Type: Spontaneous
  Country: US (occurrence: US)
  Receive Date: 20130507
  Receipt Date: 20130507
  Transmission Date: 20140414
  Serious: No
  Sender: FDA-Public Use
  Company Number: US-009507513-1305USA002001

PATIENT
  Age: 54 Year
  Sex: Female

DRUGS (1)
  1. HYZAAR [Suspect]
     Dosage: UNK
     Route: 048
     Dates: start: 201205

REACTIONS (1)
  - Photosensitivity reaction [Unknown]
